FAERS Safety Report 19272724 (Version 2)
Quarter: 2021Q2

REPORT INFORMATION
  Report Type: Spontaneous
  Country: BR (occurrence: BR)
  Receive Date: 20210518
  Receipt Date: 20210527
  Transmission Date: 20210717
  Serious: Yes (Other)
  Sender: FDA-Public Use
  Company Number: BR-PFIZER INC-2021534851

PATIENT
  Age: 14 Year
  Sex: Male
  Weight: 65 kg

DRUGS (1)
  1. GENOTROPIN [Suspect]
     Active Substance: SOMATROPIN
     Indication: GROWTH DISORDER
     Dosage: UNK
     Dates: start: 2001

REACTIONS (1)
  - Autoimmune thyroiditis [Not Recovered/Not Resolved]
